FAERS Safety Report 5414925-1 (Version None)
Quarter: 2007Q3

REPORT INFORMATION
  Report Type: 
  Country: None (occurrence: None)
  Receive Date: 20070813
  Receipt Date: 20070726
  Transmission Date: 20080115
  Serious: Yes (Life-Threatening, Hospitalization)
  Sender: FDA-Public Use
  Company Number: 159260ISR

PATIENT
  Age: 78 Year
  Sex: Female

DRUGS (1)
  1. DICLOFENAC [Suspect]
     Indication: PAIN
     Dosage: 150 MG (50 MG, 3 IN 1 D) ORAL
     Route: 048
     Dates: end: 20070716

REACTIONS (3)
  - GASTRITIS EROSIVE [None]
  - GASTROINTESTINAL HAEMORRHAGE [None]
  - SMALL INTESTINE CARCINOMA [None]
